FAERS Safety Report 5139600-2 (Version None)
Quarter: 2006Q4

REPORT INFORMATION
  Report Type: 
  Country: None (occurrence: None)
  Receive Date: 20061030
  Receipt Date: 20060605
  Transmission Date: 20070319
  Serious: Yes (Hospitalization)
  Sender: FDA-Public Use
  Company Number: US-ABBOTT-06P-163-0335262-00

PATIENT
  Sex: Female

DRUGS (20)
  1. BIAXIN [Suspect]
     Indication: OTITIS MEDIA
     Dates: start: 19980101
  2. CEPHALEXIN MONOHYDRATE [Suspect]
     Indication: STREPTOCOCCAL INFECTION
     Dates: start: 19980101
  3. SALBUTAMOL [Concomitant]
     Indication: DRUG USE FOR UNKNOWN INDICATION
  4. SALBUTAMOL [Concomitant]
     Dosage: MDI
  5. IPRATROPIUM BROMIDE [Concomitant]
     Indication: DRUG USE FOR UNKNOWN INDICATION
     Dosage: MDI
  6. BECLOMETHASONE DIPROPIONATE [Concomitant]
     Indication: DRUG USE FOR UNKNOWN INDICATION
  7. ACETAMINOPHEN [Concomitant]
     Indication: DRUG USE FOR UNKNOWN INDICATION
  8. LACRI-LUBE [Concomitant]
     Indication: DRUG USE FOR UNKNOWN INDICATION
  9. RANITIDINE HYDROCHLORIDE [Concomitant]
     Indication: DRUG USE FOR UNKNOWN INDICATION
     Route: 048
  10. MAGNESIUM GLUCONATE [Concomitant]
     Indication: DRUG USE FOR UNKNOWN INDICATION
     Route: 048
  11. NYSTATIN [Concomitant]
     Indication: DRUG USE FOR UNKNOWN INDICATION
     Route: 048
  12. AVEENO BATH [Concomitant]
     Indication: DRUG USE FOR UNKNOWN INDICATION
     Route: 061
  13. SUSTACAL [Concomitant]
     Indication: DRUG USE FOR UNKNOWN INDICATION
  14. MERBROMIN [Concomitant]
     Indication: DRUG USE FOR UNKNOWN INDICATION
     Route: 061
  15. BENADRYL ^PARKE DAVIS^ [Concomitant]
     Indication: DRUG USE FOR UNKNOWN INDICATION
     Route: 048
  16. IBUPROFEN [Concomitant]
     Indication: DRUG USE FOR UNKNOWN INDICATION
     Dosage: SUSPENSION
     Route: 048
  17. PROVENTIL [Concomitant]
     Indication: DRUG USE FOR UNKNOWN INDICATION
  18. CLINDAMYCIN [Concomitant]
     Indication: DRUG USE FOR UNKNOWN INDICATION
  19. UNSPECIFIED STEROIDS [Concomitant]
     Indication: DRUG USE FOR UNKNOWN INDICATION
  20. FLUCONAZOLE [Concomitant]
     Indication: DRUG USE FOR UNKNOWN INDICATION
     Route: 048

REACTIONS (13)
  - BLINDNESS [None]
  - DIARRHOEA [None]
  - ERYTHEMA MULTIFORME [None]
  - EYE INJURY [None]
  - LUNG DISORDER [None]
  - MULTI-ORGAN DISORDER [None]
  - PYREXIA [None]
  - RASH [None]
  - STEVENS-JOHNSON SYNDROME [None]
  - SYSTEMIC CANDIDA [None]
  - TOOTH EROSION [None]
  - URINARY TRACT INFECTION [None]
  - VARICELLA [None]
